FAERS Safety Report 5024347-3 (Version None)
Quarter: 2006Q2

REPORT INFORMATION
  Report Type: 
  Country: None (occurrence: None)
  Receive Date: 20060609
  Receipt Date: 20060609
  Transmission Date: 20061013
  Serious: Yes (Hospitalization, Disabling)
  Sender: FDA-Public Use
  Company Number: None

PATIENT
  Age: 48 Year
  Sex: Male
  Weight: 48.8 kg

DRUGS (9)
  1. TAXOTERE [Suspect]
     Indication: NEOPLASM MALIGNANT
     Dosage: 120 MG DAY 1 Q 21 DAYS IV DRIP
     Route: 041
     Dates: start: 20060424, end: 20060515
  2. FLUOROURACIL [Suspect]
     Indication: NEOPLASM MALIGNANT
     Dosage: 1200 MG DAYS 1-5 2 21 DAYS IV DRIP
     Route: 041
     Dates: start: 20060424, end: 20060519
  3. CISPLATIN [Suspect]
  4. ZOLOFT [Concomitant]
  5. NEXIUM [Concomitant]
  6. FENTANYL [Concomitant]
  7. ASPIRIN [Concomitant]
  8. PLAVIX [Concomitant]
  9. SLOMAG [Concomitant]

REACTIONS (2)
  - CAROTID ARTERY STENOSIS [None]
  - DIZZINESS [None]
